FAERS Safety Report 9452618 (Version 1)
Quarter: 2013Q3

REPORT INFORMATION
  Report Type: Spontaneous
  Country: US (occurrence: US)
  Receive Date: 20130812
  Receipt Date: 20130812
  Transmission Date: 20140515
  Serious: No
  Sender: FDA-Public Use
  Company Number: US-PFIZER INC-2013232355

PATIENT
  Sex: Female

DRUGS (2)
  1. PRISTIQ [Suspect]
     Indication: PANIC DISORDER
     Dosage: 25 MG (CUT 50MG IN HALF), UNK
     Dates: start: 20130806, end: 20130806
  2. PRISTIQ [Suspect]
     Indication: DEPRESSION
     Dosage: 50 MG, 1X/DAY
     Dates: start: 20130807

REACTIONS (7)
  - Dizziness [Unknown]
  - Hyperhidrosis [Unknown]
  - Eye disorder [Unknown]
  - Feeling jittery [Unknown]
  - Off label use [Unknown]
  - Feeling abnormal [Unknown]
  - Wrong technique in drug usage process [Unknown]
